FAERS Safety Report 22588382 (Version 2)
Quarter: 2023Q4

REPORT INFORMATION
  Report Type: Report from Study
  Country: US (occurrence: US)
  Receive Date: 20230612
  Receipt Date: 20231127
  Transmission Date: 20240110
  Serious: Yes (Other)
  Sender: FDA-Public Use
  Company Number: US-UCBSA-2023028896

PATIENT
  Age: 26 Year
  Sex: Male

DRUGS (1)
  1. MIDAZOLAM [Suspect]
     Active Substance: MIDAZOLAM
     Indication: Seizure
     Dosage: 5 MILLIGRAM, USE AS NEEDED
     Route: 045

REACTIONS (2)
  - Seizure [Not Recovered/Not Resolved]
  - Tongue biting [Not Recovered/Not Resolved]

NARRATIVE: CASE EVENT DATE: 20230606
